FAERS Safety Report 24948599 (Version 2)
Quarter: 2025Q1

REPORT INFORMATION
  Report Type: Spontaneous
  Country: GB (occurrence: GB)
  Receive Date: 20250210
  Receipt Date: 20250221
  Transmission Date: 20250409
  Serious: Yes (Death, Hospitalization, Other)
  Sender: MYLAN
  Company Number: GB-MYLANLABS-2024M1101987

PATIENT
  Age: 83 Year
  Sex: Male

DRUGS (12)
  1. CLOZARIL [Suspect]
     Active Substance: CLOZAPINE
     Indication: Dementia with Lewy bodies
     Dosage: 12.5 MILLIGRAM, PM (AT NIGHT)
     Route: 048
     Dates: start: 20241120
  2. CLOZARIL [Suspect]
     Active Substance: CLOZAPINE
     Dosage: 37.5 MILLIGRAM, QD (DAILY)
     Route: 048
     Dates: end: 20250131
  3. OLANZAPINE [Concomitant]
     Active Substance: OLANZAPINE
     Dosage: 2.5 MILLIGRAM, QD (DAILY)
     Route: 048
  4. OLANZAPINE [Concomitant]
     Active Substance: OLANZAPINE
     Dosage: 0.25 MILLIGRAM, BID (INCREASED DOSE; BD)
     Route: 048
     Dates: start: 202408
  5. OLANZAPINE [Concomitant]
     Active Substance: OLANZAPINE
     Route: 048
  6. CLONAZEPAM [Concomitant]
     Active Substance: CLONAZEPAM
     Dosage: 500 MICROGRAM, PM (AT NIGHT)
     Route: 048
  7. CLONAZEPAM [Concomitant]
     Active Substance: CLONAZEPAM
     Route: 048
     Dates: start: 202410
  8. CLONAZEPAM [Concomitant]
     Active Substance: CLONAZEPAM
     Route: 065
  9. AMLODIPINE [Concomitant]
     Active Substance: AMLODIPINE BESYLATE
     Dosage: 5 MILLIGRAM, QD (DAILY)
     Route: 048
  10. LOSARTAN [Concomitant]
     Active Substance: LOSARTAN
     Dosage: 25 MILLIGRAM, QD (DAILY)
     Route: 048
  11. RIVASTIGMINE [Concomitant]
     Active Substance: RIVASTIGMINE
     Dosage: 9.5 MILLIGRAM, QD (IN 24 HRS)
     Route: 062
  12. RIVASTIGMINE [Concomitant]
     Active Substance: RIVASTIGMINE
     Route: 062

REACTIONS (9)
  - Sepsis [Fatal]
  - Paranoia [Unknown]
  - Agitation [Unknown]
  - Dementia Alzheimer^s type [Unknown]
  - Lower respiratory tract infection [Unknown]
  - Suspiciousness [Unknown]
  - Irritability [Unknown]
  - Therapy cessation [Unknown]
  - Off label use [Unknown]

NARRATIVE: CASE EVENT DATE: 20241120
